FAERS Safety Report 8911042 (Version 4)
Quarter: 2012Q4

REPORT INFORMATION
  Report Type: Report from Study
  Country: DE (occurrence: DE)
  Receive Date: 20121116
  Receipt Date: 20121220
  Transmission Date: 20130627
  Serious: Yes (Hospitalization)
  Sender: FDA-Public Use
  Company Number: DE-JNJFOC-20121105186

PATIENT
  Age: 14 Year
  Sex: Male
  Weight: 47.7 kg

DRUGS (2)
  1. REMICADE [Suspect]
     Indication: CROHN^S DISEASE
     Route: 042
     Dates: start: 20110927
  2. AZATHIOPRINE [Concomitant]

REACTIONS (2)
  - Anal fissure [Recovered/Resolved]
  - Anal abscess [Recovered/Resolved]
